FAERS Safety Report 5487175-0 (Version None)
Quarter: 2007Q4

REPORT INFORMATION
  Report Type: 
  Country: None (occurrence: None)
  Receive Date: 20071016
  Receipt Date: 20071003
  Transmission Date: 20080405
  Serious: Yes (Other)
  Sender: FDA-Public Use
  Company Number: CA-ELI_LILLY_AND_COMPANY-CA200708001978

PATIENT
  Sex: Female

DRUGS (6)
  1. PROZAC [Suspect]
     Indication: DEPRESSION
     Dosage: 20 MG, DAILY (1/D)
     Route: 048
     Dates: start: 19900101, end: 20070623
  2. ATIVAN [Concomitant]
     Indication: FEELING ABNORMAL
     Dosage: UNK, AS NEEDED
  3. ATACAND [Concomitant]
     Indication: HYPERTENSION
  4. SINGULAIR [Concomitant]
     Indication: ASTHMA
  5. LOSEC [Concomitant]
     Indication: HERNIA
  6. VITAMIN B-12 [Concomitant]
     Indication: RED BLOOD CELL COUNT DECREASED
     Dosage: 1000 MG, UNK

REACTIONS (5)
  - AMNESIA [None]
  - CRYING [None]
  - DRUG WITHDRAWAL SYNDROME [None]
  - HYDROCEPHALUS [None]
  - PANIC ATTACK [None]
